FAERS Safety Report 16858567 (Version 1)
Quarter: 2019Q3

REPORT INFORMATION
  Report Type: Spontaneous
  Country: JP (occurrence: JP)
  Receive Date: 20190926
  Receipt Date: 20190926
  Transmission Date: 20191005
  Serious: Yes (Hospitalization)
  Sender: FDA-Public Use
  Company Number: PHHY2019JP218498

PATIENT
  Age: 82 Year
  Sex: Female

DRUGS (2)
  1. METHOTREXATE. [Suspect]
     Active Substance: METHOTREXATE
     Indication: RHEUMATOID ARTHRITIS
     Dosage: 10 MG, QW
     Route: 065
  2. FOLIC ACID. [Concomitant]
     Active Substance: FOLIC ACID
     Indication: RHEUMATOID ARTHRITIS
     Dosage: 5 MG, QW
     Route: 065

REACTIONS (10)
  - Mucocutaneous rash [Unknown]
  - Erythema [Unknown]
  - Renal disorder [Unknown]
  - Dysphagia [Unknown]
  - Toxicity to various agents [Unknown]
  - Anaemia [Unknown]
  - Oral pain [Unknown]
  - Inflammation [Unknown]
  - Rash pruritic [Unknown]
  - Pancytopenia [Unknown]
